FAERS Safety Report 15534984 (Version 2)
Quarter: 2018Q4

REPORT INFORMATION
  Report Type: Report from Study
  Country: CN (occurrence: CN)
  Receive Date: 20181022
  Receipt Date: 20181117
  Transmission Date: 20190205
  Serious: Yes (Death, Other)
  Sender: FDA-Public Use
  Company Number: CN-ROCHE-2071192

PATIENT
  Sex: Male
  Weight: 67 kg

DRUGS (1)
  1. AVASTIN [Suspect]
     Active Substance: BEVACIZUMAB
     Indication: RECTAL CANCER
     Route: 041
     Dates: start: 20170926

REACTIONS (7)
  - Intestinal obstruction [Fatal]
  - Hypokalaemia [Unknown]
  - Calcium deficiency [Unknown]
  - General physical health deterioration [Unknown]
  - Sepsis [Fatal]
  - Hyponatraemia [Unknown]
  - Electrolyte imbalance [Recovered/Resolved]
